FAERS Safety Report 7135349-5 (Version None)
Quarter: 2010Q4

REPORT INFORMATION
  Report Type: 
  Country: None (occurrence: None)
  Receive Date: 20101203
  Receipt Date: 20101201
  Transmission Date: 20110411
  Serious: Yes (Other)
  Sender: FDA-Public Use
  Company Number: US-ABBOTT-10P-163-0688515-00

PATIENT
  Sex: Female
  Weight: 61.29 kg

DRUGS (6)
  1. HUMIRA [Suspect]
     Indication: RHEUMATOID ARTHRITIS
     Dates: start: 20090101, end: 20090214
  2. GEMFIBROZIL [Concomitant]
     Indication: BLOOD TRIGLYCERIDES
  3. UNKNOWN EYE DROPS [Concomitant]
     Indication: GLAUCOMA
  4. UNKNOWN EYE DROPS [Concomitant]
  5. CELEBREX [Concomitant]
     Indication: RHEUMATOID ARTHRITIS
  6. VITAMINS [Concomitant]
     Indication: VITAMIN SUPPLEMENTATION

REACTIONS (7)
  - BLINDNESS [None]
  - EYE INFLAMMATION [None]
  - GLAUCOMA [None]
  - INTRAOCULAR PRESSURE TEST ABNORMAL [None]
  - RETINAL DEGENERATION [None]
  - RETINAL VASCULAR DISORDER [None]
  - TOXOPLASMOSIS [None]
